FAERS Safety Report 8168570-8 (Version None)
Quarter: 2012Q1

REPORT INFORMATION
  Report Type: 
  Country: None (occurrence: None)
  Receive Date: 20120227
  Receipt Date: 20120217
  Transmission Date: 20120608
  Serious: Yes (Hospitalization, Other)
  Sender: FDA-Public Use
  Company Number: US-PFIZER INC-2012042542

PATIENT
  Sex: Female
  Weight: 67.392 kg

DRUGS (9)
  1. AMLODIPINE [Concomitant]
     Indication: BLOOD PRESSURE
     Dosage: 5 MG, 1X/DAY
     Route: 048
     Dates: start: 20110608
  2. LEVOTHYROXINE [Concomitant]
     Dosage: 50 UG, 1X/DAY
     Route: 048
     Dates: start: 20110318
  3. PF-04856884 [Suspect]
     Indication: RENAL CELL CARCINOMA
     Dosage: 1074 MG, WEEKLY
     Route: 042
     Dates: start: 20120208, end: 20120215
  4. AMIODARONE [Concomitant]
     Indication: ATRIAL FIBRILLATION
     Dosage: 200 MG, 1X/DAY
     Route: 048
     Dates: start: 20110318
  5. CHLORHEXIDINE [Concomitant]
     Dosage: UNK
     Route: 048
     Dates: start: 20110802
  6. ACETYLSALICYLIC ACID [Concomitant]
     Indication: ATRIAL FIBRILLATION
     Dosage: 81 MG, 1X/DAY
     Route: 048
     Dates: start: 20110318
  7. GABAPENTIN [Concomitant]
     Indication: PAIN
     Dosage: 300 MG, 2X/DAY
     Route: 048
     Dates: start: 20110318
  8. AXITINIB [Suspect]
     Indication: RENAL CELL CARCINOMA
     Dosage: 5 MG, 2X/DAY
     Route: 048
     Dates: start: 20120208, end: 20120215
  9. METOPROLOL [Concomitant]
     Indication: HYPERTENSION
     Dosage: 25 MG, 1X/DAY
     Route: 048
     Dates: start: 20120201

REACTIONS (2)
  - ANGINA PECTORIS [None]
  - ILEUS [None]
